FAERS Safety Report 4941505-4 (Version None)
Quarter: 2006Q1

REPORT INFORMATION
  Report Type: 
  Country: None (occurrence: None)
  Receive Date: 20060308
  Receipt Date: 20060301
  Transmission Date: 20060701
  Serious: Yes (Life-Threatening, Hospitalization)
  Sender: FDA-Public Use
  Company Number: 430002M06FRA

PATIENT
  Sex: Male

DRUGS (3)
  1. NOVANTRONE [Suspect]
     Dosage: 14 MG, 1 IN 1 DAYS,
     Dates: start: 20050506, end: 20050508
  2. CYTARABINE [Suspect]
     Dosage: 1.8 G, 1 IN 1 DAYS,
     Dates: start: 20050506, end: 20050508
  3. ETOPOSIDE [Suspect]
     Dosage: 250 MG, 1 IN 1 DAYS,
     Dates: start: 20050506, end: 20050508

REACTIONS (1)
  - PANCYTOPENIA [None]
